FAERS Safety Report 23514214 (Version 2)
Quarter: 2024Q1

REPORT INFORMATION
  Report Type: Report from Study
  Country: JP (occurrence: JP)
  Receive Date: 20240212
  Receipt Date: 20240311
  Transmission Date: 20240410
  Serious: Yes (Other)
  Sender: FDA-Public Use
  Company Number: JP-OTSUKA-2023_030739

PATIENT
  Age: 93 Year
  Sex: Female
  Weight: 25.2 kg

DRUGS (27)
  1. TOLVAPTAN [Suspect]
     Active Substance: TOLVAPTAN
     Indication: Cardiac failure
     Dosage: 16 MG/DAY, TWICE/DAY
     Route: 041
     Dates: start: 20231013, end: 20231013
  2. TOLVAPTAN [Suspect]
     Active Substance: TOLVAPTAN
     Indication: Fluid retention
     Dosage: 8 MG, QD
     Route: 041
     Dates: start: 20231010, end: 20231012
  3. SAMSCA [Suspect]
     Active Substance: TOLVAPTAN
     Indication: Product used for unknown indication
     Dosage: 15 MG/DAY
     Route: 048
     Dates: start: 20231016, end: 20231023
  4. SAMSCA [Suspect]
     Active Substance: TOLVAPTAN
     Dosage: 7.5 MG/DAY
     Route: 048
     Dates: start: 20231014, end: 20231015
  5. FUROSEMIDE [Suspect]
     Active Substance: FUROSEMIDE
     Indication: Product used for unknown indication
     Dosage: 40 MG/DAY
     Route: 042
     Dates: start: 20231019, end: 20231023
  6. FUROSEMIDE [Suspect]
     Active Substance: FUROSEMIDE
     Dosage: 10 MG/DAY
     Route: 042
     Dates: start: 20231006, end: 20231008
  7. FUROSEMIDE [Suspect]
     Active Substance: FUROSEMIDE
     Dosage: 20 MG/DAY
     Route: 042
     Dates: start: 20231009, end: 20231009
  8. FUROSEMIDE [Suspect]
     Active Substance: FUROSEMIDE
     Dosage: 30 MG/DAY
     Route: 042
     Dates: start: 20231010, end: 20231011
  9. FUROSEMIDE [Suspect]
     Active Substance: FUROSEMIDE
     Dosage: 40 MG/DAY
     Route: 042
     Dates: start: 20231012, end: 20231012
  10. FUROSEMIDE [Suspect]
     Active Substance: FUROSEMIDE
     Dosage: 60 MG/DAY
     Route: 042
     Dates: start: 20231013, end: 20231018
  11. TRICHLORMETHIAZIDE [Concomitant]
     Active Substance: TRICHLORMETHIAZIDE
     Indication: Product used for unknown indication
     Dosage: 0.5 MG/DAY
     Route: 048
     Dates: start: 20231009, end: 20231018
  12. INDAPAMIDE [Concomitant]
     Active Substance: INDAPAMIDE
     Indication: Product used for unknown indication
     Dosage: 0.5 MG/DAY
     Route: 048
     Dates: start: 20231019
  13. SPIRONOLACTONE [Concomitant]
     Active Substance: SPIRONOLACTONE
     Indication: Product used for unknown indication
     Dosage: 25 MG/DAY
     Route: 048
     Dates: start: 20231009
  14. CARPERITIDE [Concomitant]
     Active Substance: CARPERITIDE
     Indication: Product used for unknown indication
     Dosage: 2000 MCG/DAY
     Route: 040
     Dates: start: 20231022, end: 20231022
  15. CARPERITIDE [Concomitant]
     Active Substance: CARPERITIDE
     Dosage: 2000 MCG/DAY
     Route: 040
     Dates: start: 20231006, end: 20231008
  16. CARPERITIDE [Concomitant]
     Active Substance: CARPERITIDE
     Dosage: 4000 MCG/DAY
     Route: 040
     Dates: start: 20231009, end: 20231019
  17. CARPERITIDE [Concomitant]
     Active Substance: CARPERITIDE
     Dosage: 3000 MCG/DAY
     Route: 040
     Dates: start: 20231020, end: 20231021
  18. AZILSARTAN KAMEDOXOMIL [Concomitant]
     Active Substance: AZILSARTAN KAMEDOXOMIL
     Indication: Product used for unknown indication
     Dosage: UNK
     Route: 048
     Dates: end: 20231010
  19. CARVEDILOL [Concomitant]
     Active Substance: CARVEDILOL
     Indication: Product used for unknown indication
     Dosage: UNK
     Route: 048
     Dates: end: 20231023
  20. LINZESS [Concomitant]
     Active Substance: LINACLOTIDE
     Indication: Prophylaxis
     Dosage: UNK
     Route: 048
  21. NIFEDIPINE [Concomitant]
     Active Substance: NIFEDIPINE
     Indication: Product used for unknown indication
     Dosage: UNK
     Route: 048
     Dates: start: 20231010
  22. ENTRESTO [Concomitant]
     Active Substance: SACUBITRIL\VALSARTAN
     Indication: Product used for unknown indication
     Dosage: UNK
     Route: 048
     Dates: start: 20231011
  23. SODIUM FERROUS CITRATE [Concomitant]
     Active Substance: SODIUM FERROUS CITRATE
     Indication: Prophylaxis
     Dosage: UNK
     Route: 048
     Dates: start: 20231013
  24. DAPRODUSTAT [Concomitant]
     Active Substance: DAPRODUSTAT
     Indication: Prophylaxis
     Dosage: UNK
     Route: 048
     Dates: start: 20231013
  25. ATORVASTATIN CALCIUM [Concomitant]
     Active Substance: ATORVASTATIN CALCIUM
     Indication: Product used for unknown indication
     Dosage: UNK
     Route: 048
     Dates: start: 20231013
  26. DOXAZOSIN MESYLATE [Concomitant]
     Active Substance: DOXAZOSIN MESYLATE
     Indication: Product used for unknown indication
     Dosage: UNK
     Route: 048
     Dates: start: 20231019
  27. NICARDIPINE HYDROCHLORIDE [Concomitant]
     Active Substance: NICARDIPINE HYDROCHLORIDE
     Indication: Product used for unknown indication
     Dosage: UNK
     Route: 050
     Dates: start: 20231019, end: 20231019

REACTIONS (3)
  - Renal impairment [Recovering/Resolving]
  - Inappropriate schedule of product administration [Unknown]
  - Drug monitoring procedure incorrectly performed [Unknown]

NARRATIVE: CASE EVENT DATE: 20231010
